FAERS Safety Report 15936379 (Version 3)
Quarter: 2020Q1

REPORT INFORMATION
  Report Type: Spontaneous
  Country: US (occurrence: US)
  Receive Date: 20190208
  Receipt Date: 20200120
  Transmission Date: 20200409
  Serious: Yes (Other)
  Sender: FDA-Public Use
  Company Number: US-GLAXOSMITHKLINE-US2019GSK023122

PATIENT
  Sex: Female

DRUGS (1)
  1. PREVACID [Suspect]
     Active Substance: LANSOPRAZOLE
     Indication: DYSPEPSIA
     Dosage: 15 MG, BID
     Route: 065

REACTIONS (4)
  - End stage renal disease [Not Recovered/Not Resolved]
  - Dialysis [Not Recovered/Not Resolved]
  - Peritoneal dialysis [Unknown]
  - Chronic kidney disease [Not Recovered/Not Resolved]
